FAERS Safety Report 7592161-0 (Version None)
Quarter: 2011Q3

REPORT INFORMATION
  Report Type: 
  Country: None (occurrence: None)
  Receive Date: 20110706
  Receipt Date: 20110622
  Transmission Date: 20111222
  Serious: Yes (Hospitalization)
  Sender: FDA-Public Use
  Company Number: GB-JNJFOC-20110611909

PATIENT
  Sex: Female
  Weight: 40.2 kg

DRUGS (6)
  1. ONDANSETRON [Concomitant]
  2. CODEINE SULFATE [Concomitant]
  3. INFLIXIMAB, RECOMBINANT [Suspect]
     Indication: CROHN'S DISEASE
     Route: 042
     Dates: start: 20081208, end: 20090807
  4. AZATHIOPRINE [Concomitant]
  5. OMEPRAZOLE [Concomitant]
  6. HUMIRA [Concomitant]
     Dates: start: 20091002, end: 20110429

REACTIONS (1)
  - CROHN'S DISEASE [None]
